FAERS Safety Report 8692101 (Version 3)
Quarter: 2013Q1

REPORT INFORMATION
  Report Type: Spontaneous
  Country: US (occurrence: US)
  Receive Date: 20120730
  Receipt Date: 20130125
  Transmission Date: 20140127
  Serious: Yes (Hospitalization, Other)
  Sender: FDA-Public Use
  Company Number: US-CELGENEUS-163-20785-12072624

PATIENT
  Age: 61 None
  Sex: Female
  Weight: 48.5 kg

DRUGS (24)
  1. THALOMID [Suspect]
     Indication: PLASMA CELL MYELOMA
     Dosage: 200 MILLIGRAM
     Route: 048
     Dates: start: 20120315, end: 201205
  2. THALOMID [Suspect]
     Dosage: 200 MILLIGRAM
     Route: 048
     Dates: start: 201206, end: 20120702
  3. VELCADE [Suspect]
     Indication: PLASMA CELL MYELOMA
     Dosage: .75 MILLIGRAM
     Route: 058
     Dates: start: 20120413, end: 20120702
  4. CYCLOPHOSPHAMIDE [Concomitant]
     Indication: PRODUCT USED FOR UNKNOWN INDICATION
     Route: 065
     Dates: end: 20120702
  5. INTRAVENOUS HYDRATION [Concomitant]
     Indication: PRODUCT USED FOR UNKNOWN INDICATION
     Route: 041
     Dates: start: 20120712
  6. DEXAMETHASONE [Concomitant]
     Indication: PLASMA CELL MYELOMA
     Dosage: 40 MILLIGRAM
     Route: 048
     Dates: start: 20120315, end: 20120702
  7. MAGNESIUM CITRATE [Concomitant]
     Indication: CONSTIPATION
     Route: 065
  8. COUMADIN [Concomitant]
     Indication: PRODUCT USED FOR UNKNOWN INDICATION
     Route: 065
  9. IMITREX [Concomitant]
     Indication: PRODUCT USED FOR UNKNOWN INDICATION
     Route: 065
  10. LEXAPRO [Concomitant]
     Indication: DEPRESSION
     Dosage: 20 MILLIGRAM
     Route: 048
  11. OXYCODONE [Concomitant]
     Indication: PAIN
     Dosage: 2 TABLETS
     Route: 048
  12. OXYCODONE [Concomitant]
     Dosage: 12 TABLET
     Route: 065
  13. CLARITHROMYCIN [Concomitant]
     Indication: PRODUCT USED FOR UNKNOWN INDICATION
     Route: 065
  14. ANTIBIOTICS [Concomitant]
     Indication: DECUBITUS ULCER
     Route: 065
  15. LOVENOX [Concomitant]
     Indication: DEEP VEIN THROMBOSIS
     Dosage: 100 MILLIGRAM
     Route: 058
     Dates: start: 201205
  16. LOVENOX [Concomitant]
     Dosage: 120 MILLIGRAM
     Route: 058
  17. MS CONTIN [Concomitant]
     Indication: CANCER PAIN
     Dosage: 90 MILLIGRAM
     Route: 048
  18. MS CONTIN [Concomitant]
     Dosage: 60 MILLIGRAM
     Route: 048
  19. MS CONTIN [Concomitant]
     Dosage: 90 MILLIGRAM
     Route: 048
  20. ACYCLOVIR [Concomitant]
     Indication: PRODUCT USED FOR UNKNOWN INDICATION
     Dosage: 1200 MILLIGRAM
     Route: 048
  21. SENNA [Concomitant]
     Indication: PRODUCT USED FOR UNKNOWN INDICATION
     Route: 065
  22. MIRALAX [Concomitant]
     Indication: CONSTIPATION
     Route: 065
  23. MAALOX [Concomitant]
     Indication: CONSTIPATION
     Route: 065
  24. DOCUSATE SODIUM [Concomitant]
     Indication: CONSTIPATION
     Route: 065

REACTIONS (5)
  - Decubitus ulcer [Recovering/Resolving]
  - Deep vein thrombosis [Unknown]
  - Anaemia [Unknown]
  - Thrombocytopenia [Unknown]
  - Sepsis [Unknown]
